FAERS Safety Report 10573285 (Version 1)
Quarter: 2014Q4

REPORT INFORMATION
  Report Type: Spontaneous
  Country: US (occurrence: None)
  Receive Date: 20141031
  Receipt Date: 20141031
  Transmission Date: 20150529
  Serious: Yes (Other)
  Sender: FDA-Public Use
  Company Number: PHEH2014US017022

PATIENT
  Age: 75 Year
  Sex: Female

DRUGS (3)
  1. TERNORMIN(ATENOLOL) [Concomitant]
  2. LESCOL XL [Suspect]
     Active Substance: FLUVASTATIN SODIUM
  3. PROBIOTICS(NO INGREDIENTS/SUBSTANCES) [Concomitant]

REACTIONS (2)
  - Chromaturia [None]
  - Drug-induced liver injury [None]
